FAERS Safety Report 9468631 (Version 2)
Quarter: 2013Q3

REPORT INFORMATION
  Report Type: Spontaneous
  Country: FR (occurrence: FR)
  Receive Date: 20130821
  Receipt Date: 20130930
  Transmission Date: 20140515
  Serious: Yes (Other)
  Sender: FDA-Public Use
  Company Number: FR-TEVA-425970ISR

PATIENT
  Age: 27 Year
  Sex: Male

DRUGS (2)
  1. COPAXONE [Suspect]
     Indication: MULTIPLE SCLEROSIS
     Dates: start: 20130408
  2. LEVITRA [Concomitant]
     Indication: ERECTILE DYSFUNCTION

REACTIONS (4)
  - Multiple sclerosis relapse [Recovered/Resolved]
  - Monoplegia [Recovered/Resolved]
  - Gait disturbance [Unknown]
  - Drug dose omission [Recovered/Resolved]
